FAERS Safety Report 5825160-7 (Version None)
Quarter: 2008Q3

REPORT INFORMATION
  Report Type: 
  Country: None (occurrence: None)
  Receive Date: 20080723
  Receipt Date: 20080708
  Transmission Date: 20090109
  Serious: Yes (Other)
  Sender: FDA-Public Use
  Company Number: 2008S1008163

PATIENT
  Age: 35 Year
  Sex: Female
  Weight: 83.9154 kg

DRUGS (19)
  1. FENTANYL TRANSDERMAL SYSTEM [Suspect]
     Indication: BACK PAIN
     Dosage: 50 UG;EVERY HOUR; TRANSDERMAL
     Route: 062
     Dates: start: 20080428, end: 20080506
  2. TYLENOL W/ CODEINE NO. 3 [Suspect]
     Indication: PAIN
  3. SOMA [Suspect]
     Indication: PAIN
  4. GEODON [Concomitant]
  5. LOZOL [Concomitant]
  6. ARMOUR THYROID [Concomitant]
  7. LITHOBID [Concomitant]
  8. SYNTHROID [Concomitant]
  9. LAMICTAL [Concomitant]
  10. TOPAMAX [Concomitant]
  11. DETROL LA [Concomitant]
  12. LEXAPRO [Concomitant]
  13. LUNESTA [Concomitant]
  14. SEROQUEL [Concomitant]
  15. ESOMEPRAZOLE [Concomitant]
  16. POTASSIUM CHLORIDE [Concomitant]
  17. SOMA [Concomitant]
  18. TYLENOL W/ CODEINE [Concomitant]
  19. DARVOCET-N 100 [Concomitant]

REACTIONS (5)
  - CONSCIOUSNESS FLUCTUATING [None]
  - LETHARGY [None]
  - LOSS OF CONSCIOUSNESS [None]
  - OVERDOSE [None]
  - PHARMACEUTICAL PRODUCT COMPLAINT [None]
